FAERS Safety Report 16177853 (Version 1)
Quarter: 2019Q2

REPORT INFORMATION
  Report Type: Spontaneous
  Country: IT (occurrence: IT)
  Receive Date: 20190410
  Receipt Date: 20190410
  Transmission Date: 20190711
  Serious: Yes (Other)
  Sender: FDA-Public Use
  Company Number: IT-AUROBINDO-AUR-APL-2019-018684

PATIENT

DRUGS (4)
  1. FLUOROURACIL. [Suspect]
     Active Substance: FLUOROURACIL
     Dosage: 518 MILLIGRAM, CYCLICAL
     Route: 040
     Dates: start: 20180709
  2. LEVOLEUCOVORIN. [Concomitant]
     Active Substance: LEVOLEUCOVORIN
     Indication: OESOPHAGEAL ADENOCARCINOMA STAGE IV
     Dosage: 259 MILLIGRAM, CYCLICAL
     Route: 042
     Dates: start: 20180709, end: 20190118
  3. OXALIPLATIN. [Suspect]
     Active Substance: OXALIPLATIN
     Indication: OESOPHAGEAL ADENOCARCINOMA STAGE IV
     Dosage: 110 MILLIGRAM, CYCLICAL
     Route: 042
     Dates: start: 20180709, end: 20190118
  4. FLUOROURACIL. [Suspect]
     Active Substance: FLUOROURACIL
     Indication: OESOPHAGEAL ADENOCARCINOMA STAGE IV
     Dosage: 3210 MILLIGRAM, CYCLICAL
     Route: 042
     Dates: start: 20180709

REACTIONS (5)
  - Dizziness [Recovering/Resolving]
  - Feeling hot [Recovering/Resolving]
  - Bronchostenosis [Recovering/Resolving]
  - Back pain [Recovering/Resolving]
  - Salivary hypersecretion [Recovering/Resolving]

NARRATIVE: CASE EVENT DATE: 20190118
